FAERS Safety Report 6668160-X (Version None)
Quarter: 2010Q2

REPORT INFORMATION
  Report Type: 
  Country: None (occurrence: None)
  Receive Date: 20100406
  Receipt Date: 20100330
  Transmission Date: 20101027
  Serious: Yes (Other)
  Sender: FDA-Public Use
  Company Number: DE-SP-2009-05710

PATIENT
  Age: 72 Year
  Sex: Female

DRUGS (1)
  1. BCG  THERAPEUTICS [Suspect]
     Indication: BLADDER CANCER
     Dosage: NOT REPORTED
     Route: 043
     Dates: end: 20080115

REACTIONS (7)
  - CORNEAL DEPOSITS [None]
  - CYSTITIS [None]
  - IRIS ADHESIONS [None]
  - KOEPPE NODULES [None]
  - UVEITIS [None]
  - VISION BLURRED [None]
  - VITREOUS DISORDER [None]
